FAERS Safety Report 10678060 (Version 1)
Quarter: 2014Q4

REPORT INFORMATION
  Report Type: Spontaneous
  Country: FR (occurrence: FR)
  Receive Date: 20141229
  Receipt Date: 20141229
  Transmission Date: 20150529
  Serious: Yes (Other)
  Sender: FDA-Public Use
  Company Number: FR-009507513-1412FRA010731

PATIENT
  Age: 40 Year
  Sex: Female

DRUGS (1)
  1. NEXPLANON [Suspect]
     Active Substance: ETONOGESTREL
     Indication: CONTRACEPTION
     Dosage: 1 DF, ONCE
     Route: 058
     Dates: start: 20141204, end: 20141209

REACTIONS (4)
  - Staphylococcal skin infection [Recovered/Resolved]
  - Implant site pain [Recovered/Resolved]
  - Pyrexia [Recovered/Resolved]
  - Implant site inflammation [Recovered/Resolved]

NARRATIVE: CASE EVENT DATE: 20141209
